FAERS Safety Report 23654841 (Version 2)
Quarter: 2024Q4

REPORT INFORMATION
  Report Type: Spontaneous
  Country: IN (occurrence: IN)
  Receive Date: 20240320
  Receipt Date: 20241023
  Transmission Date: 20250114
  Serious: Yes (Other)
  Sender: PFIZER
  Company Number: IN-PFIZER INC-PV202400037358

PATIENT
  Age: 14 Year
  Sex: Female

DRUGS (6)
  1. METHYLPREDNISOLONE SODIUM SUCCINATE [Suspect]
     Active Substance: METHYLPREDNISOLONE SODIUM SUCCINATE
     Indication: Glomerulonephritis minimal lesion
     Dosage: 2 MG/KG, 1X/DAY
     Route: 042
  2. METHYLPREDNISOLONE [Suspect]
     Active Substance: METHYLPREDNISOLONE
     Indication: Glomerulonephritis minimal lesion
     Dosage: UNK
     Route: 048
  3. RUXOLITINIB [Concomitant]
     Active Substance: RUXOLITINIB
     Indication: Graft versus host disease
     Dosage: UNK
  4. RUXOLITINIB [Concomitant]
     Active Substance: RUXOLITINIB
     Indication: Nephrotic syndrome
  5. ETANERCEPT [Concomitant]
     Active Substance: ETANERCEPT
     Indication: Graft versus host disease
     Dosage: UNK
  6. MYCOPHENOLATE MOFETIL [Concomitant]
     Active Substance: MYCOPHENOLATE MOFETIL
     Indication: Prophylaxis against graft versus host disease
     Dosage: UNK

REACTIONS (3)
  - Hypertension [Unknown]
  - Cushingoid [Unknown]
  - Tetany [Unknown]
